FAERS Safety Report 16945015 (Version 1)
Quarter: 2019Q4

REPORT INFORMATION
  Report Type: Spontaneous
  Country: US (occurrence: US)
  Receive Date: 20191021
  Receipt Date: 20191021
  Transmission Date: 20200122
  Serious: Yes (Hospitalization)
  Sender: FDA-Public Use
  Company Number: None

PATIENT
  Age: 20 Year
  Sex: Male
  Weight: 81.45 kg

DRUGS (1)
  1. GAMUNEX-C [Suspect]
     Active Substance: HUMAN IMMUNOGLOBULIN G
     Indication: MYASTHENIA GRAVIS
     Dosage: ?          OTHER FREQUENCY:EVERY 4 WEEKS;?
     Route: 042
     Dates: start: 20180828

REACTIONS (7)
  - Infusion related reaction [None]
  - Dermatitis allergic [None]
  - Panic reaction [None]
  - Pain of skin [None]
  - Pneumonia [None]
  - Arthralgia [None]
  - Feeling abnormal [None]

NARRATIVE: CASE EVENT DATE: 20191016
